FAERS Safety Report 7369470-3 (Version None)
Quarter: 2011Q1

REPORT INFORMATION
  Report Type: 
  Country: None (occurrence: None)
  Receive Date: 20110323
  Receipt Date: 20110308
  Transmission Date: 20110831
  Serious: Yes (Other)
  Sender: FDA-Public Use
  Company Number: PHHY2011US19288

PATIENT
  Age: 52 Year
  Sex: Female

DRUGS (3)
  1. CLONAZEPAM [Suspect]
  2. CARBAMAZEPINE [Suspect]
     Dosage: 600 MG, BID
  3. RISPERIDONE [Suspect]
     Dosage: 8 MG, QD

REACTIONS (10)
  - HEPATITIS [None]
  - DYSPHAGIA [None]
  - PYREXIA [None]
  - METABOLIC DISORDER [None]
  - FEELING ABNORMAL [None]
  - DYSTONIA [None]
  - HYPOTENSION [None]
  - WEIGHT INCREASED [None]
  - TRANSAMINASES INCREASED [None]
  - GLOSSITIS [None]
